FAERS Safety Report 6661745-6 (Version None)
Quarter: 2010Q1

REPORT INFORMATION
  Report Type: 
  Country: None (occurrence: None)
  Receive Date: 20100331
  Receipt Date: 20090527
  Transmission Date: 20100710
  Serious: Yes (Other)
  Sender: FDA-Public Use
  Company Number: US-BRISTOL-MYERS SQUIBB COMPANY-14637060

PATIENT
  Age: 64 Year
  Sex: Female
  Weight: 67 kg

DRUGS (14)
  1. ERBITUX [Suspect]
     Indication: COLON CANCER
     Dosage: LOADING DOSE:400MG/M2
     Route: 042
     Dates: start: 20090121, end: 20090121
  2. DECADRON [Concomitant]
     Indication: PREMEDICATION
  3. BENADRYL [Concomitant]
     Indication: PREMEDICATION
  4. ALOXI [Concomitant]
     Indication: PREMEDICATION
  5. ZOMETA [Concomitant]
  6. CAMPTOSAR [Concomitant]
  7. AMBIEN [Concomitant]
  8. NORCO [Concomitant]
  9. MARINOL [Concomitant]
  10. COMPAZINE [Concomitant]
  11. OXYCONTIN [Concomitant]
  12. NEXIUM [Concomitant]
  13. MULTI-VITAMIN [Concomitant]
  14. POTASSIUM [Concomitant]

REACTIONS (1)
  - INFUSION RELATED REACTION [None]
